FAERS Safety Report 24428367 (Version 3)
Quarter: 2024Q4

REPORT INFORMATION
  Report Type: Spontaneous
  Country: GB (occurrence: GB)
  Receive Date: 20241011
  Receipt Date: 20241119
  Transmission Date: 20250115
  Serious: No
  Sender: AMGEN
  Company Number: GB-AMGEN-GBRSP2024194241

PATIENT
  Age: 72 Year
  Sex: Female

DRUGS (1)
  1. IMLYGIC [Suspect]
     Active Substance: TALIMOGENE LAHERPAREPVEC
     Indication: Malignant melanoma
     Dosage: UNK
     Route: 065
     Dates: start: 2024

REACTIONS (1)
  - Herpes virus infection [Not Recovered/Not Resolved]

NARRATIVE: CASE EVENT DATE: 20240101
